FAERS Safety Report 10206836 (Version 1)
Quarter: 2014Q2

REPORT INFORMATION
  Report Type: Spontaneous
  Country: US (occurrence: None)
  Receive Date: 20140528
  Receipt Date: 20140528
  Transmission Date: 20141212
  Serious: Yes (Other)
  Sender: FDA-Public Use
  Company Number: None

PATIENT
  Age: 43 Year
  Sex: Female

DRUGS (1)
  1. DULOXETINE [Suspect]
     Indication: DEPRESSION
     Route: 048
     Dates: start: 20131101

REACTIONS (5)
  - Product substitution issue [None]
  - Depression [None]
  - Social avoidant behaviour [None]
  - Crying [None]
  - Product formulation issue [None]
